FAERS Safety Report 4856096-6 (Version None)
Quarter: 2005Q4

REPORT INFORMATION
  Report Type: 
  Country: None (occurrence: None)
  Receive Date: 20051216
  Receipt Date: 20051206
  Transmission Date: 20060501
  Serious: Yes (Other)
  Sender: FDA-Public Use
  Company Number: US-MERCK-0512USA00771

PATIENT
  Age: 74 Year
  Sex: Male

DRUGS (11)
  1. ZOCOR [Suspect]
     Indication: BLOOD CHOLESTEROL INCREASED
     Route: 048
     Dates: start: 19990101
  2. SPIRIVA [Concomitant]
     Route: 065
  3. ALBUTEROL [Concomitant]
     Route: 065
  4. FLUNISOLIDE [Concomitant]
     Route: 065
  5. OMEPRAZOLE [Concomitant]
     Route: 065
  6. ALENDRONATE SODIUM [Concomitant]
     Route: 065
  7. ASPIRIN [Concomitant]
     Route: 065
  8. NEURONTIN [Concomitant]
     Route: 065
  9. [THERAPY UNSPECIFIED] [Concomitant]
     Route: 065
  10. LOSARTAN POTASSIUM [Concomitant]
     Route: 065
  11. ISOSORBIDE MONONITRATE [Concomitant]
     Route: 065

REACTIONS (2)
  - LUNG DISORDER [None]
  - TREMOR [None]
